FAERS Safety Report 9848348 (Version 1)
Quarter: 2014Q1

REPORT INFORMATION
  Report Type: Spontaneous
  Country: US (occurrence: None)
  Receive Date: 20140123
  Receipt Date: 20140123
  Transmission Date: 20141002
  Serious: Yes (Other)
  Sender: FDA-Public Use
  Company Number: None

PATIENT
  Age: 84 Year
  Sex: Female

DRUGS (13)
  1. TAMBOCOR [Suspect]
     Indication: ARRHYTHMIA SUPRAVENTRICULAR
     Route: 048
     Dates: end: 20140105
  2. ATORVASTATIN (LIPITOR) [Concomitant]
  3. CHOLECALCIFEROL (VITAMIN D-3) [Concomitant]
  4. CIONLDINE (CATAPRES) [Concomitant]
  5. COENZYME Q10 (CO 0.70) [Concomitant]
  6. LACTO GASSERI-B BIFID-B LONGUM (PHILLIPS^ COLON HEALTH) [Concomitant]
  7. LEVOTHYROXINE (SYNTHROID) [Concomitant]
  8. LOSARTAN (COZAAR) [Concomitant]
  9. MAGNESIUM HYDROXIDE (PEDIA-LAX) [Concomitant]
  10. METOPROLOL (TOPROL XL) [Concomitant]
  11. OMEGA-3 FATTY ACIDS (FISH OIL .?CONCENTRATE) [Concomitant]
  12. RIVAROXABAN XARELTO) [Concomitant]
  13. SENNOSIDES (SENNA LAX) [Concomitant]

REACTIONS (5)
  - Cerebrovascular accident [None]
  - Paranoia [None]
  - Agitation [None]
  - Delusion [None]
  - Ammonia increased [None]
